FAERS Safety Report 25807839 (Version 1)
Quarter: 2025Q3

REPORT INFORMATION
  Report Type: Report from Study
  Country: BR (occurrence: BR)
  Receive Date: 20250916
  Receipt Date: 20250916
  Transmission Date: 20251020
  Serious: Yes (Other)
  Sender: TAKEDA
  Company Number: BR-TAKEDA-2025TUS041755

PATIENT
  Age: 55 Year
  Sex: Female

DRUGS (2)
  1. VEDOLIZUMAB [Suspect]
     Active Substance: VEDOLIZUMAB
     Indication: Crohn^s disease
  2. VEDOLIZUMAB [Suspect]
     Active Substance: VEDOLIZUMAB
     Dosage: 300 MILLIGRAM, Q4WEEKS
     Dates: start: 202301

REACTIONS (9)
  - Haematochezia [Unknown]
  - Inflammatory marker increased [Recovered/Resolved]
  - Memory impairment [Unknown]
  - Gait disturbance [Unknown]
  - Lung disorder [Unknown]
  - Frequent bowel movements [Unknown]
  - Inappropriate schedule of product administration [Recovered/Resolved]
  - Malaise [Unknown]
  - Vomiting [Unknown]

NARRATIVE: CASE EVENT DATE: 20250610
